FAERS Safety Report 5662365-2 (Version None)
Quarter: 2008Q1

REPORT INFORMATION
  Report Type: 
  Country: None (occurrence: None)
  Receive Date: 20080313
  Receipt Date: 20080229
  Transmission Date: 20080703
  Serious: Yes (Other)
  Sender: FDA-Public Use
  Company Number: US-RANBAXY-2008RR-13446

PATIENT

DRUGS (1)
  1. ENALAPRIL MALEATE [Suspect]
     Dosage: 10.25 MG, QD
     Route: 048

REACTIONS (1)
  - ANGIOEDEMA [None]
